FAERS Safety Report 14234060 (Version 2)
Quarter: 2018Q2

REPORT INFORMATION
  Report Type: Spontaneous
  Country: JP (occurrence: JP)
  Receive Date: 20171128
  Receipt Date: 20180412
  Transmission Date: 20180711
  Serious: Yes (Other)
  Sender: FDA-Public Use
  Company Number: JP-ROCHE-2031065

PATIENT
  Age: 72 Year
  Sex: Male

DRUGS (12)
  1. PLETAAL [Concomitant]
     Active Substance: CILOSTAZOL
     Indication: ARTERIAL OCCLUSIVE DISEASE
     Dosage: UNK
     Route: 065
  2. PLETAAL [Concomitant]
     Active Substance: CILOSTAZOL
     Indication: DIABETES MELLITUS
     Route: 065
  3. LUCENTIS [Suspect]
     Active Substance: RANIBIZUMAB
     Route: 031
  4. LUCENTIS [Suspect]
     Active Substance: RANIBIZUMAB
     Route: 031
  5. TAPCOM [Concomitant]
     Active Substance: TAFLUPROST\TIMOLOL
     Indication: GLAUCOMA
     Dosage: UNK
     Route: 047
  6. LUCENTIS [Suspect]
     Active Substance: RANIBIZUMAB
     Route: 031
  7. AZOPT [Suspect]
     Active Substance: BRINZOLAMIDE
     Indication: GLAUCOMA
     Dosage: UNK?SUSPENSION 1%
     Route: 047
     Dates: start: 201511, end: 201602
  8. PLETAAL [Concomitant]
     Active Substance: CILOSTAZOL
     Indication: HYPERTENSION
     Route: 065
  9. TRIAMCINOLONE [Suspect]
     Active Substance: TRIAMCINOLONE
     Indication: PRODUCT USED FOR UNKNOWN INDICATION
     Dosage: 20 MG, UNK
     Route: 065
  10. LUCENTIS [Suspect]
     Active Substance: RANIBIZUMAB
     Indication: DIABETIC RETINAL OEDEMA
     Route: 031
     Dates: start: 201310
  11. LUCENTIS [Suspect]
     Active Substance: RANIBIZUMAB
     Route: 031
  12. LUCENTIS [Suspect]
     Active Substance: RANIBIZUMAB
     Route: 031

REACTIONS (9)
  - Cataract [Unknown]
  - Optic nerve cupping [Unknown]
  - Glaucoma [Unknown]
  - Macular oedema [Unknown]
  - Disease progression [Unknown]
  - Visual field defect [Unknown]
  - Macular hole [Unknown]
  - Visual acuity reduced [Unknown]
  - Intraocular pressure increased [Unknown]
